FAERS Safety Report 14115754 (Version 3)
Quarter: 2018Q2

REPORT INFORMATION
  Report Type: Not Available
  Country: US (occurrence: US)
  Receive Date: 20171023
  Receipt Date: 20180502
  Transmission Date: 20180711
  Serious: Yes (Hospitalization)
  Sender: FDA-Public Use
  Company Number: US-NEUROCRINE BIOSCIENCES INC.-2017NBI00967

PATIENT
  Sex: Female

DRUGS (2)
  1. INGREZZA [Suspect]
     Active Substance: VALBENAZINE
     Indication: TARDIVE DYSKINESIA
     Dosage: TRIED INGREZZA ON A FEW DIFFERENT OCCASIONS AND NOT CONTINUOUSLY THROUGHOUT THE PERIOD
     Route: 048
     Dates: start: 20171010, end: 20171218
  2. DESMOPRESSIN [Concomitant]
     Active Substance: DESMOPRESSIN

REACTIONS (6)
  - Disturbance in attention [Unknown]
  - Tardive dyskinesia [Not Recovered/Not Resolved]
  - Hyponatraemia [Recovered/Resolved]
  - Visual impairment [Recovered/Resolved]
  - Cognitive disorder [Recovered/Resolved]
  - Dysarthria [Recovered/Resolved]

NARRATIVE: CASE EVENT DATE: 2017
